FAERS Safety Report 18620374 (Version 4)
Quarter: 2021Q1

REPORT INFORMATION
  Report Type: Spontaneous
  Country: DE (occurrence: DE)
  Receive Date: 20201216
  Receipt Date: 20210317
  Transmission Date: 20210419
  Serious: Yes (Hospitalization, Other)
  Sender: FDA-Public Use
  Company Number: DE-BRISTOL-MYERS SQUIBB COMPANY-BMS-2020-105846

PATIENT
  Age: 79 Year
  Sex: Female
  Weight: 68 kg

DRUGS (12)
  1. L?THYROX [Concomitant]
     Active Substance: LEVOTHYROXINE SODIUM
     Indication: PRODUCT USED FOR UNKNOWN INDICATION
     Dosage: 75 MICROGRAM, QD, 1?0?0?0 (PIECES)
     Route: 065
  2. LACTULOSE. [Concomitant]
     Active Substance: LACTULOSE
     Indication: PRODUCT USED FOR UNKNOWN INDICATION
     Dosage: 500 MILLILITER MEDICATION AS NEEDED; 10 (MAXIMUM 30) (ML)
     Route: 065
  3. KALINOR RETARD P [Concomitant]
     Active Substance: POTASSIUM CHLORIDE
     Indication: PRODUCT USED FOR UNKNOWN INDICATION
     Dosage: 8 MILLIMOLE, QD, 1?0?1?0 (PIECES)
     Route: 065
  4. PARACETAMOL [Concomitant]
     Active Substance: ACETAMINOPHEN
     Indication: PRODUCT USED FOR UNKNOWN INDICATION
     Dosage: 1 G INFUSION BOTTLE 100 ML MEDICATION AS NEEDED; 1 (MAXIMUM 3) (PIECES)
     Route: 065
  5. PREGABALIN. [Concomitant]
     Active Substance: PREGABALIN
     Indication: PRODUCT USED FOR UNKNOWN INDICATION
     Dosage: 25 MILLIGRAM, QD, 1?0?0?0 (PIECES)
     Route: 065
  6. OPDIVO [Suspect]
     Active Substance: NIVOLUMAB
     Indication: SQUAMOUS CELL CARCINOMA OF HEAD AND NECK
     Dosage: 240 MILLIGRAM
     Route: 065
     Dates: start: 20200320
  7. LEVOFLOXACIN. [Concomitant]
     Active Substance: LEVOFLOXACIN
     Indication: PRODUCT USED FOR UNKNOWN INDICATION
     Dosage: 5 MG/ ML INFUSION SOLUTION 100 ML, QD, 1?0?0?0 (VIAL)
     Route: 065
  8. VOMACUR [Concomitant]
     Active Substance: DIMENHYDRINATE
     Indication: PRODUCT USED FOR UNKNOWN INDICATION
     Dosage: 150 MILLIGRAM, MEDICATION AS NEEDED; 1 (MAXIMUM 3) (PIECES)
     Route: 065
  9. LOPEDIUM [Concomitant]
     Active Substance: LOPERAMIDE
     Indication: PRODUCT USED FOR UNKNOWN INDICATION
     Dosage: 2 MILLIGRAM, MEDICATION AS NEEDED; 1 (MAXIMUM 6) (PIECES)
     Route: 065
  10. EUBIOL [ARGININE ASPARTATE] [Concomitant]
     Indication: PRODUCT USED FOR UNKNOWN INDICATION
     Dosage: 375 MILLIGRAM, QD, 1?1?0?0 (PIECES)
     Route: 065
  11. BALDRIAN?DISPERT [Concomitant]
     Active Substance: VALERIAN
     Indication: PRODUCT USED FOR UNKNOWN INDICATION
     Dosage: 45 MILLIGRAM, 2 (MAXIMUM 2) (PIECES)
     Route: 065
  12. OXYGESIC AKUT [Concomitant]
     Active Substance: OXYCODONE
     Indication: PRODUCT USED FOR UNKNOWN INDICATION
     Dosage: 5 MEDICATION AS NEEDED; 1 (MAXIMUM 2) (PIECES)
     Route: 065

REACTIONS (5)
  - Metastasis [Unknown]
  - Compression fracture [Unknown]
  - Intervertebral discitis [Recovered/Resolved]
  - Urinary tract infection [Unknown]
  - Disease recurrence [Unknown]

NARRATIVE: CASE EVENT DATE: 20201124
